FAERS Safety Report 7205066-1 (Version None)
Quarter: 2010Q4

REPORT INFORMATION
  Report Type: 
  Country: None (occurrence: None)
  Receive Date: 20101230
  Receipt Date: 20101220
  Transmission Date: 20110411
  Serious: Yes (Death)
  Sender: FDA-Public Use
  Company Number: US-GENENTECH-244988

PATIENT
  Sex: Male
  Weight: 79.5 kg

DRUGS (7)
  1. ERLOTINIB [Suspect]
     Indication: NON-SMALL CELL LUNG CANCER
     Dosage: 150 MG, QD
     Route: 048
     Dates: start: 20070130
  2. BEVACIZUMAB [Suspect]
     Indication: NON-SMALL CELL LUNG CANCER
     Dosage: 1002 MG, Q3W
     Route: 042
     Dates: start: 20061102
  3. FENTANYL-100 [Concomitant]
     Indication: PAIN
     Dosage: 50/75 A?G, Q3D
     Route: 062
     Dates: start: 20060821
  4. VICODIN [Concomitant]
     Indication: PAIN
     Dosage: 75 MG, PRN
     Route: 048
     Dates: start: 20060918
  5. LACTULOSE [Concomitant]
     Indication: CONSTIPATION
     Dosage: 30 ML, PRN
     Route: 048
     Dates: start: 20060821
  6. MEGACE [Concomitant]
     Indication: INCREASED APPETITE
     Dosage: 15 ML, PRN
     Route: 048
     Dates: start: 20061009
  7. ALCOHOL [Concomitant]
     Indication: PRODUCT USED FOR UNKNOWN INDICATION

REACTIONS (1)
  - CARDIAC ARREST [None]
